FAERS Safety Report 4986511-9 (Version None)
Quarter: 2006Q2

REPORT INFORMATION
  Report Type: 
  Country: None (occurrence: None)
  Receive Date: 20060428
  Receipt Date: 20060328
  Transmission Date: 20061013
  Serious: Yes (Hospitalization)
  Sender: FDA-Public Use
  Company Number: ES-ROCHE-442199

PATIENT
  Age: 66 Year
  Sex: Male

DRUGS (17)
  1. MYCOPHENOLATE MOFETIL [Suspect]
     Route: 065
     Dates: start: 20050315, end: 20050805
  2. MYCOPHENOLATE MOFETIL [Suspect]
     Route: 065
     Dates: start: 20050806
  3. TACROLIMUS [Suspect]
     Dosage: ADJUSTED TO REACH PREDEFINED TARGET LEVELS
     Route: 065
     Dates: start: 20050316
  4. METHYLPREDNISOLONE 4MG TAB [Suspect]
     Dosage: TAPERED ACCORDING TO LOCAL PROTOCOL
     Route: 065
     Dates: start: 20050315, end: 20050317
  5. PREDNISONE [Suspect]
     Dosage: TAPERED ACCORDING TO LOCAL PROTOCOL
     Route: 065
     Dates: start: 20050318
  6. CLOXACILLIN SODIUM [Concomitant]
     Dates: start: 20050316, end: 20050316
  7. AMPICILLINE [Concomitant]
     Dates: start: 20050316, end: 20050316
  8. GENTAMICIN [Concomitant]
     Dates: start: 20050316, end: 20050316
  9. AMOXICILLIN/CLAVULANIC ACID [Concomitant]
     Dates: start: 20050318, end: 20050327
  10. LOSARTAN POTASSIUM [Concomitant]
     Dates: start: 20050321
  11. ARANESP [Concomitant]
     Dates: start: 20050323, end: 20050520
  12. DOXAZOSIN MESYLATE [Concomitant]
     Dates: start: 20050330
  13. INSULIN [Concomitant]
     Dates: start: 20050315
  14. ATORVASTATIN CALCIUM [Concomitant]
     Dates: start: 20050428
  15. CIPROFLOXACIN HCL [Concomitant]
     Dosage: STOPPED ON 18 AUGUST 2005, RESTARTED ON 16 DECEMBER 2005. STOPPED ON 26 DECEMBER 2005, RESTARTED ON+
     Dates: start: 20050808, end: 20060316
  16. FOSFOCINE [Concomitant]
     Indication: URINARY TRACT INFECTION
     Dates: start: 20050517, end: 20050527
  17. BAYCIP [Concomitant]
     Indication: URINARY TRACT INFECTION
     Dates: start: 20050531, end: 20050609

REACTIONS (2)
  - URETHRAL STENOSIS [None]
  - URINARY TRACT INFECTION [None]
